FAERS Safety Report 4452958-2 (Version None)
Quarter: 2004Q3

REPORT INFORMATION
  Report Type: 
  Country: None (occurrence: None)
  Receive Date: 20040916
  Receipt Date: 20040903
  Transmission Date: 20050211
  Serious: Yes (Other)
  Sender: FDA-Public Use
  Company Number: 2004048842

PATIENT
  Age: 63 Year
  Sex: Male

DRUGS (8)
  1. VIAGRA [Suspect]
     Indication: ERECTILE DYSFUNCTION
     Dosage: (50 MG, AS NECESSARY)
  2. ETHANOL (ETHANOL) [Suspect]
     Indication: ILL-DEFINED DISORDER
  3. CABERGOLINE [Concomitant]
  4. ACETYLCYSTEINE [Concomitant]
  5. IRBESARTAN (IRBESARTAN) [Concomitant]
  6. MULTIVITAMINS (ASCORBIC ACID, ERGOCALCIFEROL, FOLIC ACID, NICOTINAMIDE [Concomitant]
  7. ROSUVASTATIN (ROSUVASTATIN) [Concomitant]
  8. TESTOSTERONE [Concomitant]

REACTIONS (9)
  - ALCOHOL USE [None]
  - CAROTID ARTERY ATHEROMA [None]
  - DISORIENTATION [None]
  - FALL [None]
  - HEAD INJURY [None]
  - HYPOTENSION [None]
  - LOSS OF CONSCIOUSNESS [None]
  - SUPRAVENTRICULAR EXTRASYSTOLES [None]
  - VENTRICULAR EXTRASYSTOLES [None]
